FAERS Safety Report 13132929 (Version 1)
Quarter: 2017Q1

REPORT INFORMATION
  Report Type: Spontaneous
  Country: US (occurrence: US)
  Receive Date: 20170119
  Receipt Date: 20170119
  Transmission Date: 20170428
  Serious: Yes (Other)
  Sender: FDA-Public Use
  Company Number: None

PATIENT
  Age: 37 Year
  Sex: Female
  Weight: 78.7 kg

DRUGS (3)
  1. SYNTHROID 112 [Concomitant]
  2. T3 [Concomitant]
     Active Substance: LIOTHYRONINE SODIUM
  3. LEVOFLOXACIN 500MG [Suspect]
     Active Substance: LEVOFLOXACIN
     Indication: SINUSITIS
     Dosage: ?          QUANTITY:2 TABLET(S);?
     Route: 048
     Dates: start: 20170117, end: 20170119

REACTIONS (2)
  - Musculoskeletal pain [None]
  - Rotator cuff syndrome [None]

NARRATIVE: CASE EVENT DATE: 20170119
